FAERS Safety Report 13052276 (Version 3)
Quarter: 2017Q1

REPORT INFORMATION
  Report Type: Spontaneous
  Country: US (occurrence: US)
  Receive Date: 20161221
  Receipt Date: 20170328
  Transmission Date: 20170428
  Serious: Yes (Hospitalization)
  Sender: FDA-Public Use
  Company Number: US-LUNDBECK-DKLU2020017

PATIENT
  Age: 82 Year
  Sex: Male
  Weight: 81 kg

DRUGS (3)
  1. NORTHERA [Suspect]
     Active Substance: DROXIDOPA
     Indication: PRODUCT USED FOR UNKNOWN INDICATION
     Route: 065
     Dates: start: 20160823
  2. ROPINIROLE. [Suspect]
     Active Substance: ROPINIROLE
     Indication: PARKINSON^S DISEASE
     Route: 065
  3. NORTHERA [Suspect]
     Active Substance: DROXIDOPA
     Route: 065

REACTIONS (6)
  - Inappropriate schedule of drug administration [Unknown]
  - Blood pressure abnormal [Unknown]
  - Blood pressure orthostatic decreased [Unknown]
  - Drug dose omission [Unknown]
  - Hallucination, visual [Unknown]
  - Syncope [Unknown]

NARRATIVE: CASE EVENT DATE: 20170131
